FAERS Safety Report 25918663 (Version 1)
Quarter: 2025Q4

REPORT INFORMATION
  Report Type: Spontaneous
  Country: US (occurrence: None)
  Receive Date: 20251010
  Receipt Date: 20251010
  Transmission Date: 20260118
  Serious: Yes (Hospitalization)
  Sender: FDA-CTU
  Company Number: None

PATIENT
  Age: 58 Year
  Sex: Male
  Weight: 124.9 kg

DRUGS (17)
  1. MYCOPHENOLIC ACID [Suspect]
     Active Substance: MYCOPHENOLIC ACID
     Indication: Renal transplant
     Dosage: FREQUENCY : TWICE A DAY;?
     Route: 048
     Dates: start: 202301
  2. CALCITRIOL 0.25MCG CAPSULES [Concomitant]
  3. MIDODRINE HYDROCHLORIDE [Concomitant]
     Active Substance: MIDODRINE HYDROCHLORIDE
  4. NULOJIX 250MG INJ, 1 VIAL [Concomitant]
  5. SODIUM BICARBONATE 10GR(650MG) TABS [Concomitant]
  6. VITAMIN D 1,000UNIT CAPSULES [Concomitant]
  7. METOCLOPRAMIDE [Concomitant]
     Active Substance: METOCLOPRAMIDE
  8. MYCOPHENOLIC ACID [Concomitant]
     Active Substance: MYCOPHENOLIC ACID
  9. ROSUVASTATIN 40MG TABLETS [Concomitant]
  10. ROSUVASTATIN 40MG TABLETS [Concomitant]
  11. TAMSULOSIN [Concomitant]
     Active Substance: TAMSULOSIN
  12. VALTOCO 10MG NASAL SPR 1X10MG 2 PK [Concomitant]
  13. ASPIRIN 81 MG EC LOW DOSE TABLETS [Concomitant]
  14. LAMOTRIGINE [Concomitant]
     Active Substance: LAMOTRIGINE
  15. LEVETIRACET AM 500MG TABLETS [Concomitant]
  16. NOVOLOG FLEXPEN INJ 3ML (ORANGE) [Concomitant]
  17. PANTOPRAZOLE [Concomitant]
     Active Substance: PANTOPRAZOLE

REACTIONS (3)
  - Influenza [None]
  - Pneumonia [None]
  - Hypervolaemia [None]

NARRATIVE: CASE EVENT DATE: 20250929
